FAERS Safety Report 7061881-9 (Version None)
Quarter: 2010Q4

REPORT INFORMATION
  Report Type: 
  Country: None (occurrence: None)
  Receive Date: 20101026
  Receipt Date: 20101019
  Transmission Date: 20110411
  Serious: Yes (Other)
  Sender: FDA-Public Use
  Company Number: US-US-EMD SERONO, INC.-7023449

PATIENT
  Sex: Female

DRUGS (6)
  1. REBIF [Suspect]
     Indication: PRODUCT USED FOR UNKNOWN INDICATION
     Route: 058
     Dates: start: 20100915
  2. IBUPROFEN [Concomitant]
     Indication: PREMEDICATION
  3. NORTRIPTYLINE HCL [Concomitant]
     Indication: BALANCE DISORDER
  4. NORTRIPTYLINE HCL [Concomitant]
     Indication: PAIN IN EXTREMITY
  5. NORTRIPTYLINE HCL [Concomitant]
     Indication: ARTHRALGIA
  6. NORTRIPTYLINE HCL [Concomitant]

REACTIONS (2)
  - INJECTION SITE ERYTHEMA [None]
  - INTRAOCULAR PRESSURE INCREASED [None]
